FAERS Safety Report 5678238-5 (Version None)
Quarter: 2008Q1

REPORT INFORMATION
  Report Type: 
  Country: None (occurrence: None)
  Receive Date: 20080319
  Receipt Date: 20080303
  Transmission Date: 20080703
  Serious: Yes (Hospitalization)
  Sender: FDA-Public Use
  Company Number: 2008EU000500

PATIENT
  Age: 30 Year
  Sex: Male

DRUGS (15)
  1. TACROLIMUS [Suspect]
     Indication: RENAL TRANSPLANT
     Dosage: 6 MG, BID, ORAL;5 MG, BID, ORAL; 4 MG, BID, ORAL; 3 MG, BID, ORAL; 1 MG, BID, ORAL
     Route: 048
     Dates: start: 20080214, end: 20080218
  2. TACROLIMUS [Suspect]
     Indication: RENAL TRANSPLANT
     Dosage: 6 MG, BID, ORAL;5 MG, BID, ORAL; 4 MG, BID, ORAL; 3 MG, BID, ORAL; 1 MG, BID, ORAL
     Route: 048
     Dates: start: 20080218, end: 20080220
  3. TACROLIMUS [Suspect]
     Indication: RENAL TRANSPLANT
     Dosage: 6 MG, BID, ORAL;5 MG, BID, ORAL; 4 MG, BID, ORAL; 3 MG, BID, ORAL; 1 MG, BID, ORAL
     Route: 048
     Dates: start: 20080220, end: 20080223
  4. TACROLIMUS [Suspect]
     Indication: RENAL TRANSPLANT
     Dosage: 6 MG, BID, ORAL;5 MG, BID, ORAL; 4 MG, BID, ORAL; 3 MG, BID, ORAL; 1 MG, BID, ORAL
     Route: 048
     Dates: start: 20080223, end: 20080226
  5. TACROLIMUS [Suspect]
     Indication: RENAL TRANSPLANT
     Dosage: 6 MG, BID, ORAL;5 MG, BID, ORAL; 4 MG, BID, ORAL; 3 MG, BID, ORAL; 1 MG, BID, ORAL
     Route: 048
     Dates: start: 20080227
  6. GANCICLOVIR [Suspect]
  7. ANTIDIARR.., INTEST. ANTIINFL./ANTIINFEC.TAGEN. [Concomitant]
  8. ZOPICLONE (ZOPICLONE) [Concomitant]
  9. ATORVASTATIN CALCIUM [Concomitant]
  10. PANTOPRAZOLE SODIUM [Concomitant]
  11. ALLOPURINOL [Concomitant]
  12. RILMENIDINE (RILMENIDINE) [Concomitant]
  13. CYCLOSPORINE [Concomitant]
  14. CORTICOSTEROIDS [Concomitant]
  15. CELLCEPT [Concomitant]

REACTIONS (2)
  - DRUG INTERACTION [None]
  - DRUG LEVEL INCREASED [None]
